FAERS Safety Report 23193547 (Version 1)
Quarter: 2023Q4

REPORT INFORMATION
  Report Type: Spontaneous
  Country: CA (occurrence: CA)
  Receive Date: 20231116
  Receipt Date: 20231116
  Transmission Date: 20240110
  Serious: Yes (Death, Hospitalization, Other)
  Sender: FDA-Public Use
  Company Number: CA-TEVA-2020-CA-1233569

PATIENT
  Age: 64 Year
  Sex: Female

DRUGS (8)
  1. PANTOPRAZOLE [Suspect]
     Active Substance: PANTOPRAZOLE
     Indication: Product used for unknown indication
     Dosage: 40 MILLIGRAM DAILY;
     Route: 048
  2. VALSARTAN [Suspect]
     Active Substance: VALSARTAN
     Indication: Product used for unknown indication
     Dosage: 160 MILLIGRAM DAILY;
     Route: 065
  3. CELEBREX [Suspect]
     Active Substance: CELECOXIB
     Indication: Pain
     Route: 065
  4. DIOVAN [Suspect]
     Active Substance: VALSARTAN
     Indication: Product used for unknown indication
     Dosage: 80 MILLIGRAM DAILY;
     Route: 048
  5. SANDOSTATIN [Suspect]
     Active Substance: OCTREOTIDE ACETATE
     Indication: Neuroendocrine tumour
     Route: 030
  6. CLONAZEPAM [Concomitant]
     Active Substance: CLONAZEPAM
     Indication: Product used for unknown indication
     Route: 048
  7. DILTIAZEM [Concomitant]
     Active Substance: DILTIAZEM
     Indication: Product used for unknown indication
     Dosage: 160 MILLIGRAM DAILY;
     Route: 048
  8. IMODIUM [Concomitant]
     Active Substance: LOPERAMIDE HYDROCHLORIDE
     Indication: Product used for unknown indication
     Route: 065

REACTIONS (38)
  - Abdominal distension [Fatal]
  - Abdominal pain [Fatal]
  - Alopecia [Fatal]
  - Back pain [Fatal]
  - Blood pressure diastolic decreased [Fatal]
  - Blood pressure increased [Fatal]
  - Brain neoplasm [Fatal]
  - Cardiac disorder [Fatal]
  - Cerebrovascular accident [Fatal]
  - Chest pain [Fatal]
  - Coma [Fatal]
  - Confusional state [Fatal]
  - Constipation [Fatal]
  - Cough [Fatal]
  - Death [Fatal]
  - Decreased appetite [Fatal]
  - Diarrhoea [Fatal]
  - Drug ineffective [Fatal]
  - Ear pain [Fatal]
  - Fatigue [Fatal]
  - Flushing [Fatal]
  - Headache [Fatal]
  - Heart rate decreased [Fatal]
  - Hepatic pain [Fatal]
  - Injection site pain [Fatal]
  - Loss of consciousness [Fatal]
  - Memory impairment [Fatal]
  - Myalgia [Fatal]
  - Nausea [Fatal]
  - Oedema peripheral [Fatal]
  - Oropharyngeal pain [Fatal]
  - Osteoarthritis [Fatal]
  - Pain [Fatal]
  - Pain in extremity [Fatal]
  - Pancreatic disorder [Fatal]
  - Pneumonia [Fatal]
  - Rhinorrhoea [Fatal]
  - Second primary malignancy [Fatal]
